FAERS Safety Report 5798283-9 (Version None)
Quarter: 2008Q3

REPORT INFORMATION
  Report Type: 
  Country: None (occurrence: None)
  Receive Date: 20080702
  Receipt Date: 20080625
  Transmission Date: 20090109
  Serious: Yes (Other)
  Sender: FDA-Public Use
  Company Number: US-JNJFOC-20080606724

PATIENT
  Age: 54 Year
  Sex: Female

DRUGS (14)
  1. ARESTIN [Suspect]
     Indication: DRUG USE FOR UNKNOWN INDICATION
     Route: 004
  2. LISINOPRIL [Concomitant]
  3. PAXIL [Concomitant]
  4. CALCIUM [Concomitant]
  5. ESTRADIOL [Concomitant]
  6. FENTANYL [Concomitant]
  7. VITAMIN B [Concomitant]
  8. BONIVA [Concomitant]
  9. IMITREX [Concomitant]
  10. SENNA [Concomitant]
  11. TRAZODONE HCL [Concomitant]
  12. ROXICET [Concomitant]
  13. TOPAMAX [Concomitant]
  14. ALEVE [Concomitant]

REACTIONS (3)
  - FUNGAL INFECTION [None]
  - HYPERSENSITIVITY [None]
  - OXYGEN SATURATION DECREASED [None]
